FAERS Safety Report 4981203-4 (Version None)
Quarter: 2006Q1

REPORT INFORMATION
  Report Type: 
  Country: None (occurrence: None)
  Receive Date: 20060227
  Receipt Date: 20050613
  Transmission Date: 20060701
  Serious: Yes (Disabling)
  Sender: FDA-Public Use
  Company Number: WAES 0506USA02010

PATIENT
  Age: 65 Year
  Sex: Male

DRUGS (9)
  1. ZOCOR [Suspect]
     Indication: BLOOD CHOLESTEROL INCREASED
     Dosage: 10 MG DAILY PO
     Route: 048
     Dates: start: 19930101, end: 20030101
  2. ZOCOR [Suspect]
     Indication: BLOOD CHOLESTEROL INCREASED
     Dosage: 10 MG DAILY PO
     Route: 048
     Dates: start: 20030101, end: 20030101
  3. ASTELIN [Concomitant]
  4. BENICAR [Concomitant]
  5. CLARINEX [Concomitant]
  6. NEXIUM [Concomitant]
  7. NIASPAN [Concomitant]
  8. RHINOCORT [Concomitant]
  9. TOPROL-XL [Concomitant]

REACTIONS (2)
  - HIP ARTHROPLASTY [None]
  - URTICARIA [None]
